FAERS Safety Report 7960294-2 (Version None)
Quarter: 2011Q4

REPORT INFORMATION
  Report Type: 
  Country: None (occurrence: None)
  Receive Date: 20111206
  Receipt Date: 20111205
  Transmission Date: 20120403
  Serious: Yes (Life-Threatening, Hospitalization, Other)
  Sender: FDA-Public Use
  Company Number: PHFR2010GB05329

PATIENT
  Sex: Female
  Weight: 90.2 kg

DRUGS (7)
  1. OLANZAPINE [Concomitant]
     Indication: PSYCHOTIC DISORDER
     Dosage: 20 MG, PRN
  2. PROCYCLIDINE HYDROCHLORIDE 2MG TAB [Concomitant]
     Indication: EXTRAPYRAMIDAL DISORDER
     Dosage: 5MG DAILY
     Route: 048
     Dates: end: 20101110
  3. OLANZAPINE [Concomitant]
     Dosage: 5 MG, PRN
  4. HYOSCINE HYDROBROMIDE [Concomitant]
     Indication: SALIVARY HYPERSECRETION
     Dosage: 600 UG DAILY
     Route: 048
  5. CLOZARIL [Suspect]
     Indication: SCHIZOPHRENIA
     Dosage: 175 MG, BID
     Route: 048
     Dates: start: 20100902, end: 20101116
  6. METFORMIN HCL [Concomitant]
     Indication: WEIGHT INCREASED
     Dosage: 1500MG DAILY
     Route: 048
     Dates: end: 20101212
  7. SENNA [Concomitant]
     Indication: CONSTIPATION
     Dosage: 2 DF/DAILY
     Route: 048
     Dates: start: 20101008, end: 20101103

REACTIONS (6)
  - DYSPNOEA [None]
  - ACTIVATED PARTIAL THROMBOPLASTIN TIME PROLONGED [None]
  - TACHYCARDIA [None]
  - LEFT VENTRICULAR DYSFUNCTION [None]
  - ANTIPSYCHOTIC DRUG LEVEL ABOVE THERAPEUTIC [None]
  - LOWER RESPIRATORY TRACT INFECTION [None]
